FAERS Safety Report 17475077 (Version 1)
Quarter: 2020Q1

REPORT INFORMATION
  Report Type: Report from Study
  Country: BR (occurrence: BR)
  Receive Date: 20200228
  Receipt Date: 20200228
  Transmission Date: 20200409
  Serious: Yes (Other)
  Sender: FDA-Public Use
  Company Number: BR-JNJFOC-20190320952

PATIENT
  Age: 46 Year
  Sex: Male
  Weight: 62 kg

DRUGS (2)
  1. STELARA [Suspect]
     Active Substance: USTEKINUMAB
     Indication: ANKYLOSING SPONDYLITIS
  2. STELARA [Suspect]
     Active Substance: USTEKINUMAB
     Indication: CROHN^S DISEASE
     Route: 058
     Dates: start: 20180829

REACTIONS (14)
  - Nervous system disorder [Not Recovered/Not Resolved]
  - Dermal cyst [Not Recovered/Not Resolved]
  - Pyrexia [Unknown]
  - Nephrolithiasis [Not Recovered/Not Resolved]
  - Renal mass [Unknown]
  - Abdominal pain lower [Unknown]
  - Pain [Not Recovered/Not Resolved]
  - Blister [Not Recovered/Not Resolved]
  - Vomiting [Not Recovered/Not Resolved]
  - Product dose omission [Unknown]
  - Urinary tract infection [Unknown]
  - Skin fissures [Not Recovered/Not Resolved]
  - Headache [Unknown]
  - Feeding disorder [Unknown]

NARRATIVE: CASE EVENT DATE: 20190319
